FAERS Safety Report 6497992-6 (Version None)
Quarter: 2009Q4

REPORT INFORMATION
  Report Type: 
  Country: None (occurrence: None)
  Receive Date: 20091215
  Receipt Date: 20091203
  Transmission Date: 20100525
  Serious: Yes (Other)
  Sender: FDA-Public Use
  Company Number: PHEH2009US17144

PATIENT
  Sex: Female

DRUGS (3)
  1. GENTEAL GEL (NVO) [Suspect]
     Dosage: UNK
     Route: 047
  2. PREDNISONE [Concomitant]
     Dosage: UNK, UNK
     Route: 065
  3. TEARS NATURALE [Concomitant]
     Dosage: UNK, UNK
     Route: 065

REACTIONS (3)
  - CATARACT [None]
  - GLAUCOMA [None]
  - MACULAR DEGENERATION [None]
